FAERS Safety Report 8571518-5 (Version None)
Quarter: 2012Q3

REPORT INFORMATION
  Report Type: 
  Country: None (occurrence: None)
  Receive Date: 20120806
  Receipt Date: 20120725
  Transmission Date: 20120928
  Serious: Yes (Hospitalization)
  Sender: FDA-Public Use
  Company Number: JP-JNJFOC-20120708050

PATIENT
  Sex: Male
  Weight: 72 kg

DRUGS (3)
  1. LYRICA [Concomitant]
     Indication: LUMBAR SPINAL STENOSIS
     Route: 048
     Dates: start: 20110627
  2. LYRICA [Concomitant]
     Indication: PAIN
     Route: 048
     Dates: start: 20110627
  3. FENTANYL CITRATE [Suspect]
     Indication: BACK PAIN
     Route: 062
     Dates: start: 20111124

REACTIONS (1)
  - SLEEP APNOEA SYNDROME [None]
